FAERS Safety Report 7666607-3 (Version None)
Quarter: 2011Q3

REPORT INFORMATION
  Report Type: 
  Country: None (occurrence: None)
  Receive Date: 20110806
  Receipt Date: 20110510
  Transmission Date: 20111222
  Serious: No
  Sender: FDA-Public Use
  Company Number: US-ABBOTT-11P-163-0715219-00

PATIENT
  Sex: Female
  Weight: 158.9 kg

DRUGS (5)
  1. NIASPAN [Suspect]
  2. METFORMIN HCL [Concomitant]
     Indication: PRODUCT USED FOR UNKNOWN INDICATION
  3. NIASPAN [Suspect]
     Dosage: 750MG, 2 IN 1 DAY AT HS
     Dates: start: 20110401
  4. NIASPAN [Suspect]
     Indication: PRODUCT USED FOR UNKNOWN INDICATION
     Dosage: AT HS
     Dates: start: 20100101, end: 20110401
  5. ASPIRIN [Concomitant]
     Indication: PRODUCT USED FOR UNKNOWN INDICATION

REACTIONS (2)
  - MEDICATION RESIDUE [None]
  - DRUG INEFFECTIVE [None]
